FAERS Safety Report 16975469 (Version 4)
Quarter: 2020Q1

REPORT INFORMATION
  Report Type: Report from Study
  Country: US (occurrence: US)
  Receive Date: 20191030
  Receipt Date: 20200104
  Transmission Date: 20200409
  Serious: Yes (Hospitalization, Other)
  Sender: FDA-Public Use
  Company Number: NVSC2019US018951

PATIENT
  Age: 49 Year
  Sex: Male

DRUGS (1)
  1. COSENTYX [Suspect]
     Active Substance: SECUKINUMAB
     Indication: PSORIASIS
     Dosage: 300 MG, QW FOR 5 WEEKS
     Route: 065
     Dates: start: 201710

REACTIONS (7)
  - Seizure [Unknown]
  - Influenza like illness [Unknown]
  - Sepsis [Unknown]
  - Pulmonary embolism [Unknown]
  - Rotator cuff syndrome [Unknown]
  - Soft tissue infection [Recovered/Resolved]
  - Incision site discharge [Unknown]

NARRATIVE: CASE EVENT DATE: 201910
